FAERS Safety Report 23179078 (Version 1)
Quarter: 2023Q4

REPORT INFORMATION
  Report Type: Spontaneous
  Country: IT (occurrence: IT)
  Receive Date: 20231113
  Receipt Date: 20231113
  Transmission Date: 20240110
  Serious: Yes (Other)
  Sender: FDA-Public Use
  Company Number: None

PATIENT
  Age: 20 Year
  Sex: Female
  Weight: 46 kg

DRUGS (6)
  1. DOSTINEX [Suspect]
     Active Substance: CABERGOLINE
     Indication: Pituitary hyperplasia
     Dosage: 0.5 MG, WEEKLY
     Route: 048
     Dates: start: 20220115, end: 20220122
  2. DOSTINEX [Suspect]
     Active Substance: CABERGOLINE
     Indication: Hyperprolactinaemia
  3. FERROUS GLUCONATE [Concomitant]
     Active Substance: FERROUS GLUCONATE
     Dosage: 80 MG
  4. PANTOPRAZOLE SODIUM [Concomitant]
     Active Substance: PANTOPRAZOLE SODIUM
     Dosage: UNK
  5. DROSPIL [Concomitant]
     Dosage: UNK
     Dates: start: 20230619
  6. FERROUS SULFATE [Concomitant]
     Active Substance: FERROUS SULFATE
     Dosage: UNK

REACTIONS (8)
  - Respiratory tract irritation [Not Recovered/Not Resolved]
  - Cough [Not Recovered/Not Resolved]
  - Quality of life decreased [Recovered/Resolved with Sequelae]
  - Feeling jittery [Recovered/Resolved]
  - Muscle contractions involuntary [Recovering/Resolving]
  - Limb discomfort [Recovered/Resolved with Sequelae]
  - Burning sensation [Recovered/Resolved with Sequelae]
  - Fatigue [Recovered/Resolved with Sequelae]

NARRATIVE: CASE EVENT DATE: 20220117
